FAERS Safety Report 19883836 (Version 1)
Quarter: 2021Q3

REPORT INFORMATION
  Report Type: Spontaneous
  Country: US (occurrence: US)
  Receive Date: 20210925
  Receipt Date: 20210925
  Transmission Date: 20211014
  Serious: Yes (Hospitalization)
  Sender: FDA-Public Use
  Company Number: None

PATIENT
  Age: 53 Year
  Sex: Male
  Weight: 93.6 kg

DRUGS (1)
  1. REGEN?COV [Suspect]
     Active Substance: CASIRIVIMAB\IMDEVIMAB
     Indication: MONOCLONAL ANTIBODY UNCONJUGATED THERAPY
     Route: 041
     Dates: start: 20210918, end: 20210918

REACTIONS (2)
  - Blood pressure increased [None]
  - Respiratory rate increased [None]

NARRATIVE: CASE EVENT DATE: 20210918
